FAERS Safety Report 23958238 (Version 1)
Quarter: 2024Q2

REPORT INFORMATION
  Report Type: Spontaneous
  Country: NL (occurrence: NL)
  Receive Date: 20240610
  Receipt Date: 20240610
  Transmission Date: 20240716
  Serious: Yes (Other)
  Sender: FDA-Public Use
  Company Number: None

PATIENT
  Age: 67 Year
  Sex: Female
  Weight: 100 kg

DRUGS (1)
  1. LENALIDOMIDE [Suspect]
     Active Substance: LENALIDOMIDE
     Indication: Targeted cancer therapy
     Dosage: UNK UNK, QD (1XDAILY)
     Route: 065
     Dates: start: 20240219

REACTIONS (17)
  - Neuropathy peripheral [Recovering/Resolving]
  - Skin fissures [Not Recovered/Not Resolved]
  - Fine motor skill dysfunction [Recovering/Resolving]
  - Visual impairment [Not Recovered/Not Resolved]
  - Pain in jaw [Recovering/Resolving]
  - Product substitution issue [Unknown]
  - Onychoclasis [Not Recovered/Not Resolved]
  - Tendon pain [Recovering/Resolving]
  - Pubic pain [Recovering/Resolving]
  - Joint swelling [Recovering/Resolving]
  - Balance disorder [Recovering/Resolving]
  - Musculoskeletal chest pain [Recovering/Resolving]
  - Nausea [Recovered/Resolved]
  - Influenza like illness [Recovered/Resolved]
  - Diarrhoea [Recovering/Resolving]
  - Fatigue [Recovering/Resolving]
  - Back pain [Recovering/Resolving]
